FAERS Safety Report 8144831-3 (Version None)
Quarter: 2012Q1

REPORT INFORMATION
  Report Type: 
  Country: None (occurrence: None)
  Receive Date: 20120214
  Receipt Date: 20120203
  Transmission Date: 20120608
  Serious: Yes (Hospitalization)
  Sender: FDA-Public Use
  Company Number: 128704-2

PATIENT
  Age: 60 Year
  Sex: Male

DRUGS (2)
  1. REFER TO CIOMS FORM 16222598 [Concomitant]
  2. LEUCOVORIN CALCIUM [Suspect]
     Indication: GASTROINTESTINAL CANCER METASTATIC
     Dosage: 678MG IV
     Route: 042
     Dates: start: 20110831

REACTIONS (16)
  - GASTROINTESTINAL HAEMORRHAGE [None]
  - LETHARGY [None]
  - BILE DUCT OBSTRUCTION [None]
  - FEBRILE NEUTROPENIA [None]
  - HAEMOGLOBIN DECREASED [None]
  - HAEMOLYTIC ANAEMIA [None]
  - HEPATIC NEOPLASM MALIGNANT [None]
  - NEOPLASM PROGRESSION [None]
  - POST PROCEDURAL COMPLICATION [None]
  - SMALL INTESTINAL OBSTRUCTION [None]
  - BACTERIAL INFECTION [None]
  - HEPATIC STEATOSIS [None]
  - LYMPHADENOPATHY [None]
  - HYPERBILIRUBINAEMIA [None]
  - ULCER [None]
  - CHOLANGITIS [None]
